FAERS Safety Report 14338931 (Version 1)
Quarter: 2017Q4

REPORT INFORMATION
  Report Type: Spontaneous
  Country: US (occurrence: US)
  Receive Date: 20171229
  Receipt Date: 20171229
  Transmission Date: 20180321
  Serious: No
  Sender: FDA-Public Use
  Company Number: US-MITSUBISHI TANABE PHARMA CORPORATION-MPE2017-0027416

PATIENT
  Sex: Male
  Weight: 81.27 kg

DRUGS (10)
  1. SALINE FLUSH [Concomitant]
     Active Substance: SODIUM CHLORIDE
     Route: 065
  2. MELATONIN [Concomitant]
     Active Substance: MELATONIN
     Route: 065
  3. RILUZOLE. [Concomitant]
     Active Substance: RILUZOLE
     Route: 065
  4. BACLOFEN. [Concomitant]
     Active Substance: BACLOFEN
     Route: 065
  5. HEPARIN FLUSH [Concomitant]
     Active Substance: HEPARIN SODIUM
     Dosage: 10 UNITS/ML
     Route: 065
  6. TAMADOL [Concomitant]
     Active Substance: TRAMADOL HYDROCHLORIDE
     Route: 065
  7. LMX CREAM [Concomitant]
     Route: 061
  8. RADICAVA [Suspect]
     Active Substance: EDARAVONE
     Indication: AMYOTROPHIC LATERAL SCLEROSIS
     Route: 042
  9. GABAPENTIN. [Concomitant]
     Active Substance: GABAPENTIN
     Route: 065
  10. TRAZODONE [Concomitant]
     Active Substance: TRAZODONE HYDROCHLORIDE
     Route: 065

REACTIONS (1)
  - Influenza [Unknown]
